FAERS Safety Report 10554835 (Version 3)
Quarter: 2014Q4

REPORT INFORMATION
  Report Type: Report from Study
  Country: JP (occurrence: JP)
  Receive Date: 20141030
  Receipt Date: 20141121
  Transmission Date: 20150529
  Serious: Yes (Hospitalization, Disabling, Other)
  Sender: FDA-Public Use
  Company Number: JP-GLAXOSMITHKLINE-A201404792

PATIENT
  Age: 72 Year
  Sex: Female

DRUGS (6)
  1. SYMMETREL [Concomitant]
     Active Substance: AMANTADINE HYDROCHLORIDE
     Indication: PARKINSON^S DISEASE
     Dosage: UNK MG, UNK
     Dates: end: 20140305
  2. MENESIT [Concomitant]
     Active Substance: CARBIDOPA\LEVODOPA
     Indication: PARKINSON^S DISEASE
     Dosage: UNK MG, UNK
  3. ROPINIROLE HYDROCHLORIDE. [Suspect]
     Active Substance: ROPINIROLE HYDROCHLORIDE
     Indication: PARKINSON^S DISEASE
     Dosage: 2 MG, QD
     Route: 048
     Dates: start: 20130926, end: 20131211
  4. NAUZELIN [Concomitant]
     Active Substance: DOMPERIDONE
     Dosage: UNK
  5. FP (JAPAN) [Concomitant]
     Indication: PARKINSON^S DISEASE
     Dosage: UNK MG, UNK
     Route: 048
     Dates: end: 20140312
  6. ROPINIROLE HYDROCHLORIDE. [Suspect]
     Active Substance: ROPINIROLE HYDROCHLORIDE
     Dosage: 4 MG, QD
     Route: 048
     Dates: start: 20131212, end: 20140815

REACTIONS (3)
  - Delusion [Recovering/Resolving]
  - Cerebral haemorrhage [Recovered/Resolved with Sequelae]
  - Hallucination [Recovering/Resolving]

NARRATIVE: CASE EVENT DATE: 20140306
